FAERS Safety Report 10697634 (Version 1)
Quarter: 2015Q1

REPORT INFORMATION
  Report Type: Spontaneous
  Country: US (occurrence: None)
  Receive Date: 20150107
  Receipt Date: 20150107
  Transmission Date: 20150721
  Serious: Yes (Hospitalization)
  Sender: FDA-Public Use
  Company Number: None

PATIENT
  Age: 77 Year
  Sex: Female
  Weight: 77.7 kg

DRUGS (1)
  1. CYTARABINE. [Suspect]
     Active Substance: CYTARABINE
     Dates: end: 20130501

REACTIONS (4)
  - Pyrexia [None]
  - Platelet count decreased [None]
  - Chest pain [None]
  - Neutropenia [None]

NARRATIVE: CASE EVENT DATE: 20130511
